FAERS Safety Report 25582361 (Version 1)
Quarter: 2025Q3

REPORT INFORMATION
  Report Type: Spontaneous
  Country: EU (occurrence: EU)
  Receive Date: 20250720
  Receipt Date: 20250720
  Transmission Date: 20251021
  Serious: Yes (Hospitalization, Other)
  Sender: Unknown Manufacturer
  Company Number: EU-STRIDES ARCOLAB LIMITED-2025OS000121

PATIENT
  Age: 72 Year
  Sex: Male

DRUGS (7)
  1. CYCLOSPORINE [Suspect]
     Active Substance: CYCLOSPORINE
     Indication: Myocarditis-myositis-myasthenia gravis overlap syndrome
     Route: 065
  2. TACROLIMUS [Suspect]
     Active Substance: TACROLIMUS
     Indication: Myocarditis-myositis-myasthenia gravis overlap syndrome
     Route: 065
  3. PYRIDOSTIGMINE [Suspect]
     Active Substance: PYRIDOSTIGMINE
     Indication: Myocarditis-myositis-myasthenia gravis overlap syndrome
     Route: 065
  4. METHYLPREDNISOLONE [Suspect]
     Active Substance: METHYLPREDNISOLONE
     Indication: Myocarditis-myositis-myasthenia gravis overlap syndrome
     Route: 040
  5. METHYLPREDNISOLONE [Suspect]
     Active Substance: METHYLPREDNISOLONE
     Route: 065
  6. IMMUNE GLOBULIN NOS [Suspect]
     Active Substance: IMMUNE GLOBULIN NOS
     Indication: Myocarditis-myositis-myasthenia gravis overlap syndrome
  7. PEMBROLIZUMAB [Concomitant]
     Active Substance: PEMBROLIZUMAB
     Indication: Malignant melanoma
     Route: 042

REACTIONS (4)
  - Bicytopenia [Unknown]
  - Anaemia [Unknown]
  - Thrombocytopenia [Unknown]
  - Drug ineffective for unapproved indication [Unknown]
